FAERS Safety Report 5904683-6 (Version None)
Quarter: 2008Q4

REPORT INFORMATION
  Report Type: 
  Country: None (occurrence: None)
  Receive Date: 20081001
  Receipt Date: 20080922
  Transmission Date: 20090506
  Serious: Yes (Other)
  Sender: FDA-Public Use
  Company Number: US-JNJFOC-20071204568

PATIENT
  Sex: Male
  Weight: 77.11 kg

DRUGS (12)
  1. FENTANYL TRANSDERMAL SYSTEM [Suspect]
     Indication: NERVE INJURY
     Dosage: 2X50UG/HR PATCHES
     Route: 062
  2. FENTANYL TRANSDERMAL SYSTEM [Suspect]
     Indication: NEUROPATHY PERIPHERAL
     Route: 062
  3. FENTANYL TRANSDERMAL SYSTEM [Suspect]
     Indication: DRUG USE FOR UNKNOWN INDICATION
     Route: 062
  4. LYRICA [Suspect]
     Indication: NEUROPATHY PERIPHERAL
     Route: 048
  5. LYRICA [Suspect]
     Indication: NERVE INJURY
     Route: 048
  6. CYMBALTA [Suspect]
     Indication: NEUROPATHY PERIPHERAL
     Route: 048
  7. LASIX [Suspect]
     Indication: FLUID RETENTION
     Route: 048
  8. FLOMAX [Concomitant]
     Indication: BLADDER DISORDER
     Route: 048
  9. ATENOLOL [Concomitant]
     Indication: HYPERTENSION
     Route: 048
  10. CALCITRIOL [Concomitant]
     Indication: GASTRIC BYPASS
     Dosage: 3-4 TIMES DAILY
     Route: 048
  11. COUMADIN [Concomitant]
     Indication: DEEP VEIN THROMBOSIS
     Route: 048
  12. SYNTHROID [Concomitant]
     Indication: THYROID DISORDER
     Route: 048

REACTIONS (8)
  - CALCIUM DEFICIENCY [None]
  - HALLUCINATION [None]
  - IMPAIRED GASTRIC EMPTYING [None]
  - MUSCLE SPASMS [None]
  - NEUROPATHY PERIPHERAL [None]
  - WEIGHT INCREASED [None]
  - WHITE BLOOD CELL COUNT INCREASED [None]
  - WRONG TECHNIQUE IN DRUG USAGE PROCESS [None]
